FAERS Safety Report 13077080 (Version 1)
Quarter: 2016Q4

REPORT INFORMATION
  Report Type: Report from Study
  Country: BR (occurrence: BR)
  Receive Date: 20161230
  Receipt Date: 20161230
  Transmission Date: 20170207
  Serious: Yes (Other)
  Sender: FDA-Public Use
  Company Number: ALCN2016BR009809

PATIENT
  Sex: Female
  Weight: 80 kg

DRUGS (2)
  1. XALATAN [Suspect]
     Active Substance: LATANOPROST
     Indication: PRODUCT USED FOR UNKNOWN INDICATION
     Dosage: UNK
     Route: 065
  2. TRAVATAN Z [Suspect]
     Active Substance: TRAVOPROST
     Indication: GLAUCOMA
     Dosage: 1 GTT, QHS
     Route: 047

REACTIONS (6)
  - Retinal vascular disorder [Unknown]
  - Ear haemorrhage [Recovering/Resolving]
  - Eye pain [Recovering/Resolving]
  - Hypoacusis [Unknown]
  - Visual acuity reduced [Unknown]
  - Arrhythmia [Unknown]
